FAERS Safety Report 11935833 (Version 1)
Quarter: 2016Q1

REPORT INFORMATION
  Report Type: Spontaneous
  Country: US (occurrence: US)
  Receive Date: 20160121
  Receipt Date: 20160121
  Transmission Date: 20160526
  Serious: No
  Sender: FDA-Public Use
  Company Number: US-OTSUKA-2015_014577

PATIENT
  Age: 37 Year
  Sex: Female
  Weight: 58.5 kg

DRUGS (3)
  1. PROZAC [Concomitant]
     Active Substance: FLUOXETINE HYDROCHLORIDE
     Indication: ANXIETY
     Dosage: 60 MG, QD
     Route: 065
     Dates: start: 20151027, end: 20151113
  2. PRAZOSIN [Concomitant]
     Active Substance: PRAZOSIN
     Indication: ANXIETY
     Dosage: 1 MG, QDAY PRN
     Route: 065
     Dates: start: 20151027, end: 20151113
  3. REXULTI [Suspect]
     Active Substance: BREXPIPRAZOLE
     Indication: DEPRESSION
     Dosage: 2 MG, QD
     Route: 048
     Dates: start: 20151027, end: 20151113

REACTIONS (2)
  - Libido increased [Recovered/Resolved]
  - Off label use [Unknown]

NARRATIVE: CASE EVENT DATE: 201511
